FAERS Safety Report 12461438 (Version 1)
Quarter: 2016Q2

REPORT INFORMATION
  Report Type: Spontaneous
  Country: FR (occurrence: FR)
  Receive Date: 20160613
  Receipt Date: 20160613
  Transmission Date: 20160815
  Serious: Yes (Other)
  Sender: FDA-Public Use
  Company Number: FR-ELI_LILLY_AND_COMPANY-FR201606002693

PATIENT
  Age: 72 Year
  Sex: Male

DRUGS (1)
  1. ALIMTA [Suspect]
     Active Substance: PEMETREXED DISODIUM
     Indication: MESOTHELIOMA MALIGNANT
     Dosage: UNK, UNKNOWN
     Route: 042
     Dates: start: 20160126

REACTIONS (8)
  - Rash papular [Recovered/Resolved]
  - Nausea [Unknown]
  - Malaise [Recovered/Resolved]
  - Chorea [Recovered/Resolved]
  - Coordination abnormal [Recovered/Resolved]
  - Asthenia [Recovered/Resolved]
  - Skin plaque [Recovered/Resolved]
  - Pyrexia [Recovered/Resolved]

NARRATIVE: CASE EVENT DATE: 201602
